FAERS Safety Report 25450258 (Version 1)
Quarter: 2025Q2

REPORT INFORMATION
  Report Type: Spontaneous
  Country: IT (occurrence: IT)
  Receive Date: 20250618
  Receipt Date: 20250618
  Transmission Date: 20250716
  Serious: Yes (Life-Threatening)
  Sender: AUROBINDO
  Company Number: IT-PFIZER INC-PV202200104962

PATIENT
  Age: 3 Year
  Sex: Female

DRUGS (4)
  1. ACYCLOVIR [Suspect]
     Active Substance: ACYCLOVIR
     Indication: Product used for unknown indication
     Dosage: 30 MILLIGRAM/KILOGRAM, ONCE A DAY,(30 MG/KG, DAILY)
     Route: 065
  2. AZITHROMYCIN [Suspect]
     Active Substance: AZITHROMYCIN
     Indication: Product used for unknown indication
     Route: 065
  3. CEFTRIAXONE [Suspect]
     Active Substance: CEFTRIAXONE
     Indication: Product used for unknown indication
     Route: 065
  4. METHYLPREDNISOLONE [Suspect]
     Active Substance: METHYLPREDNISOLONE
     Indication: Product used for unknown indication
     Dosage: 1.8 MILLIGRAM/KILOGRAM, ONCE A DAY,(1.8 MG/KG, DAILY)
     Route: 065

REACTIONS (1)
  - Drug ineffective [Unknown]
